FAERS Safety Report 23611897 (Version 1)
Quarter: 2024Q1

REPORT INFORMATION
  Report Type: Spontaneous
  Country: CN (occurrence: CN)
  Receive Date: 20240308
  Receipt Date: 20240308
  Transmission Date: 20240410
  Serious: Yes (Hospitalization, Other)
  Sender: FDA-Public Use
  Company Number: None

PATIENT
  Age: 46 Year
  Sex: Female
  Weight: 55 kg

DRUGS (4)
  1. CYCLOPHOSPHAMIDE [Suspect]
     Active Substance: CYCLOPHOSPHAMIDE
     Indication: Breast cancer female
     Dosage: 0.9 G, QD, DILUTED WITH 500 ML OF SODIUM CHLORIDE (IMPORTED)
     Route: 041
     Dates: start: 20240220, end: 20240220
  2. EPIRUBICIN [Suspect]
     Active Substance: EPIRUBICIN
     Indication: Breast cancer female
     Dosage: 150 MG, QD, DILUTED WITH 100 ML OF SODIUM CHLORIDE
     Route: 041
     Dates: start: 20240220, end: 20240220
  3. SODIUM CHLORIDE [Suspect]
     Active Substance: SODIUM CHLORIDE
     Indication: Breast cancer female
     Dosage: 500 ML, QD, USED TO DILUTE 0.9 G OF CYCLOPHOSPHAMIDE
     Route: 041
     Dates: start: 20240220, end: 20240220
  4. SODIUM CHLORIDE [Suspect]
     Active Substance: SODIUM CHLORIDE
     Dosage: 100 ML, QD, USED TO DILUTE 150 MG OF PHARMORUBICIN
     Route: 041
     Dates: start: 20240220, end: 20240220

REACTIONS (5)
  - Breast cancer female [Unknown]
  - Condition aggravated [Unknown]
  - White blood cell count decreased [Recovering/Resolving]
  - Neutrophil count decreased [Recovering/Resolving]
  - Monocyte count decreased [Recovering/Resolving]

NARRATIVE: CASE EVENT DATE: 20240226
